FAERS Safety Report 25388929 (Version 1)
Quarter: 2025Q2

REPORT INFORMATION
  Report Type: Spontaneous
  Country: US (occurrence: US)
  Receive Date: 20250603
  Receipt Date: 20250603
  Transmission Date: 20250717
  Serious: No
  Sender: PADAGIS
  Company Number: US-PADAGIS-2025PAD00656

PATIENT

DRUGS (4)
  1. TRETINOIN [Suspect]
     Active Substance: TRETINOIN
     Indication: Dermatosis
     Route: 065
  2. TRIAMCINOLONE ACETONIDE [Suspect]
     Active Substance: TRIAMCINOLONE ACETONIDE
     Indication: Dermatosis
     Route: 026
  3. TRIAMCINOLONE ACETONIDE [Suspect]
     Active Substance: TRIAMCINOLONE ACETONIDE
     Route: 065
  4. CLOBETASOL [Suspect]
     Active Substance: CLOBETASOL
     Indication: Dermatosis
     Route: 065

REACTIONS (2)
  - Drug ineffective [Unknown]
  - Product use in unapproved indication [Unknown]
